FAERS Safety Report 4525965-9 (Version None)
Quarter: 2004Q4

REPORT INFORMATION
  Report Type: 
  Country: None (occurrence: None)
  Receive Date: 20041213
  Receipt Date: 20041213
  Transmission Date: 20050328
  Serious: Yes (Other)
  Sender: FDA-Public Use
  Company Number: None

PATIENT
  Age: 60 Year
  Sex: Male
  Weight: 83.9154 kg

DRUGS (3)
  1. DOZXAZOSIN   2 MGM [Suspect]
     Indication: BENIGN PROSTATIC HYPERPLASIA
     Dosage: 1 DAILY
     Dates: start: 20041204, end: 20041208
  2. DOZXAZOSIN   2 MGM [Suspect]
     Indication: HYPERTENSION
     Dosage: 1 DAILY
     Dates: start: 20041204, end: 20041208
  3. LOVOSTATIN [Concomitant]

REACTIONS (3)
  - HEADACHE [None]
  - NAUSEA [None]
  - VOMITING [None]
